FAERS Safety Report 6735598-1 (Version None)
Quarter: 2010Q2

REPORT INFORMATION
  Report Type: 
  Country: None (occurrence: None)
  Receive Date: 20100521
  Receipt Date: 20100512
  Transmission Date: 20101027
  Serious: Yes (Hospitalization)
  Sender: FDA-Public Use
  Company Number: JP-AMGEN-QUU413038

PATIENT
  Age: 64 Year
  Sex: Female

DRUGS (3)
  1. ENBREL [Suspect]
     Indication: RHEUMATOID ARTHRITIS
     Route: 058
     Dates: start: 20090301, end: 20090601
  2. ENBREL [Suspect]
     Route: 058
     Dates: start: 20081201, end: 20090201
  3. ENBREL [Suspect]
     Route: 058
     Dates: start: 20080601, end: 20081001

REACTIONS (3)
  - ARTHRITIS BACTERIAL [None]
  - DERMATITIS PSORIASIFORM [None]
  - STAPHYLOCOCCAL INFECTION [None]
